FAERS Safety Report 25477324 (Version 3)
Quarter: 2025Q3

REPORT INFORMATION
  Report Type: Report from Study
  Country: CO (occurrence: CO)
  Receive Date: 20250625
  Receipt Date: 20250926
  Transmission Date: 20251021
  Serious: Yes (Hospitalization, Other)
  Sender: TAKEDA
  Company Number: CO-TAKEDA-2024TUS036209

PATIENT
  Age: 81 Year
  Sex: Male
  Weight: 61.8 kg

DRUGS (4)
  1. VEDOLIZUMAB [Suspect]
     Active Substance: VEDOLIZUMAB
     Indication: Colitis ulcerative
  2. VEDOLIZUMAB [Suspect]
     Active Substance: VEDOLIZUMAB
     Dosage: 300 MILLIGRAM, Q4WEEKS
  3. VEDOLIZUMAB [Suspect]
     Active Substance: VEDOLIZUMAB
  4. VEDOLIZUMAB [Suspect]
     Active Substance: VEDOLIZUMAB
     Dosage: 108 MILLIGRAM, Q2WEEKS

REACTIONS (14)
  - Localised infection [Unknown]
  - Pneumonia [Unknown]
  - Therapeutic response decreased [Unknown]
  - Sleep disorder [Unknown]
  - Body height increased [Unknown]
  - Weight decreased [Unknown]
  - Influenza like illness [Unknown]
  - Rhinorrhoea [Unknown]
  - Asthenia [Unknown]
  - Malaise [Unknown]
  - Cough [Unknown]
  - Oropharyngeal pain [Unknown]
  - Headache [Unknown]
  - Nasal congestion [Unknown]

NARRATIVE: CASE EVENT DATE: 20240411
